FAERS Safety Report 8737412 (Version 2)
Quarter: 2012Q4

REPORT INFORMATION
  Report Type: 
  Country: US (occurrence: US)
  Receive Date: 20120822
  Receipt Date: 20120828
  Transmission Date: 20130627
  Serious: Yes (Hospitalization, Other)
  Sender: FDA-Public Use
  Company Number: US-PFIZER INC-2012203054

PATIENT
  Age: 55 Year
  Sex: Female
  Weight: 79.8 kg

DRUGS (4)
  1. LYRICA [Suspect]
     Indication: PAIN
     Dosage: 50 mg, 2x/day
     Route: 048
     Dates: start: 201206, end: 201206
  2. LYRICA [Suspect]
     Indication: FIBROMYALGIA
     Dosage: 75 mg, 1x/day
     Route: 048
     Dates: start: 201206, end: 201206
  3. LYRICA [Suspect]
     Dosage: 150 mg, 1x/day
     Route: 048
     Dates: start: 201206, end: 2012
  4. LYRICA [Suspect]
     Dosage: 150 mg, 2x/day
     Route: 048
     Dates: start: 2012

REACTIONS (8)
  - Fall [Unknown]
  - Weight increased [Unknown]
  - Vertigo [Unknown]
  - Gait disturbance [Unknown]
  - Dysstasia [Unknown]
  - Feeling abnormal [Not Recovered/Not Resolved]
  - Pain [Not Recovered/Not Resolved]
  - Malaise [Unknown]
